FAERS Safety Report 9475877 (Version 3)
Quarter: 2013Q4

REPORT INFORMATION
  Report Type: Spontaneous
  Country: JP (occurrence: None)
  Receive Date: 20130821
  Receipt Date: 20131024
  Transmission Date: 20140711
  Serious: Yes (Other)
  Sender: FDA-Public Use
  Company Number: 2013JP005150

PATIENT
  Age: 77 Year
  Sex: Female
  Weight: 32 kg

DRUGS (3)
  1. PROTECADIN (LAFUTIDINE) [Concomitant]
  2. GABAPENTIN ENACARBIL [Suspect]
     Indication: RESTLESS LEGS SYNDROME
     Dosage: UID/QD
     Route: 048
     Dates: start: 20130724, end: 20130725
  3. CARVEDILOL (CARVEDILOL) [Concomitant]

REACTIONS (4)
  - Nausea [None]
  - Movement disorder [None]
  - Dizziness [None]
  - Intentional drug misuse [None]
